FAERS Safety Report 12691496 (Version 2)
Quarter: 2016Q3

REPORT INFORMATION
  Report Type: Report from Study
  Country: US (occurrence: US)
  Receive Date: 20160826
  Receipt Date: 20160902
  Transmission Date: 20161109
  Serious: Yes (Hospitalization)
  Sender: FDA-Public Use
  Company Number: US-ACTELION-A-US2016-141156

PATIENT
  Age: 60 Year
  Sex: Female

DRUGS (2)
  1. OPSUMIT [Suspect]
     Active Substance: MACITENTAN
     Indication: PULMONARY ARTERIAL HYPERTENSION
     Dosage: UNK
     Route: 048
     Dates: start: 20160607
  2. LASIX [Concomitant]
     Active Substance: FUROSEMIDE

REACTIONS (9)
  - Abnormal weight gain [Recovered/Resolved]
  - Haematochezia [Recovered/Resolved]
  - Aspartate aminotransferase increased [Unknown]
  - Transfusion [Recovered/Resolved]
  - Blood glucose increased [Unknown]
  - Presyncope [Unknown]
  - Hepatic cirrhosis [Unknown]
  - Lower gastrointestinal haemorrhage [Recovered/Resolved]
  - Melaena [Recovered/Resolved]

NARRATIVE: CASE EVENT DATE: 20160805
